FAERS Safety Report 17803407 (Version 1)
Quarter: 2020Q2

REPORT INFORMATION
  Report Type: Spontaneous
  Country: US (occurrence: US)
  Receive Date: 20200519
  Receipt Date: 20200519
  Transmission Date: 20200714
  Serious: No
  Sender: FDA-Public Use
  Company Number: US-CMP PHARMA-2020CMP00008

PATIENT

DRUGS (1)
  1. CAROSPIR [Suspect]
     Active Substance: SPIRONOLACTONE

REACTIONS (1)
  - Dysphagia [Unknown]
